FAERS Safety Report 18158826 (Version 3)
Quarter: 2020Q4

REPORT INFORMATION
  Report Type: Spontaneous
  Country: JP (occurrence: JP)
  Receive Date: 20200817
  Receipt Date: 20201029
  Transmission Date: 20210113
  Serious: Yes (Disabling, Other)
  Sender: FDA-Public Use
  Company Number: JP-BRISTOL-MYERS SQUIBB COMPANY-BMS-2020-065293

PATIENT
  Age: 7 Decade
  Sex: Male

DRUGS (1)
  1. ORENCIA [Suspect]
     Active Substance: ABATACEPT
     Indication: PROSTATIC SPECIFIC ANTIGEN
     Dosage: 125 MILLIGRAM, QWK
     Route: 058

REACTIONS (2)
  - Intentional product use issue [Unknown]
  - Colitis ulcerative [Recovering/Resolving]
